FAERS Safety Report 25587370 (Version 1)
Quarter: 2025Q3

REPORT INFORMATION
  Report Type: Spontaneous
  Country: US (occurrence: US)
  Receive Date: 20250721
  Receipt Date: 20250721
  Transmission Date: 20251021
  Serious: No
  Sender: Alora Pharma
  Company Number: US-OSMOTICA PHARMACEUTICALS-2025ALO02202

PATIENT

DRUGS (1)
  1. RELEXXII [Suspect]
     Active Substance: METHYLPHENIDATE HYDROCHLORIDE

REACTIONS (1)
  - Nausea [Unknown]
